FAERS Safety Report 9531186 (Version 1)
Quarter: 2013Q2

REPORT INFORMATION
  Report Type: Spontaneous
  Country: US (occurrence: None)
  Receive Date: 20130418
  Receipt Date: 20130418
  Transmission Date: 20140414
  Serious: Yes (Other)
  Sender: FDA-Public Use
  Company Number: 1301USA002091

PATIENT
  Age: 7 Year
  Sex: Male

DRUGS (5)
  1. SINGULAIR [Suspect]
     Route: 048
  2. NUTROPIN (ATROPINE SULFATE) [Suspect]
     Dosage: 1 MG, 6/WEEK, SUBCUTANEOUS
     Route: 058
  3. MIRALAX (POLYETHYLENE GLYCOL 3350) [Concomitant]
  4. FLOVENT (FLUTICASONE PROPIONATE) [Concomitant]
  5. ALBUTEROL (ALBUTEROL) [Concomitant]

REACTIONS (4)
  - Sinusitis [None]
  - Pain in extremity [None]
  - Limb injury [None]
  - Gait disturbance [None]
